FAERS Safety Report 8524383-6 (Version None)
Quarter: 2012Q3

REPORT INFORMATION
  Report Type: 
  Country: None (occurrence: None)
  Receive Date: 20120716
  Receipt Date: 20120716
  Transmission Date: 20120928
  Serious: Yes (Hospitalization)
  Sender: FDA-Public Use
  Company Number: None

PATIENT
  Age: 62 Year
  Sex: Male
  Weight: 60 kg

DRUGS (2)
  1. SIMVASTATIN [Suspect]
     Dosage: 40 MG PM PO; MG EVERY DAY PO
     Route: 048
     Dates: start: 20041007, end: 20110807
  2. SIMVASTATIN [Suspect]
     Dosage: 40 MG PM PO; MG EVERY DAY PO
     Route: 048
     Dates: start: 20000211, end: 20110807

REACTIONS (3)
  - RENAL FAILURE ACUTE [None]
  - BLOOD CREATINE PHOSPHOKINASE INCREASED [None]
  - DRUG INTERACTION [None]
